FAERS Safety Report 4350911-0 (Version None)
Quarter: 2004Q2

REPORT INFORMATION
  Report Type: 
  Country: None (occurrence: None)
  Receive Date: 20040430
  Receipt Date: 20040428
  Transmission Date: 20050107
  Serious: Yes (Other)
  Sender: FDA-Public Use
  Company Number: US-GLAXOSMITHKLINE-A0508962A

PATIENT

DRUGS (1)
  1. PAXIL CR [Suspect]
     Route: 048

REACTIONS (5)
  - AGRANULOCYTOSIS [None]
  - CONTUSION [None]
  - NEUTROPENIA [None]
  - PANCYTOPENIA [None]
  - PROTHROMBIN TIME PROLONGED [None]
